FAERS Safety Report 7279292-X (Version None)
Quarter: 2011Q1

REPORT INFORMATION
  Report Type: 
  Country: None (occurrence: None)
  Receive Date: 20110207
  Receipt Date: 20110127
  Transmission Date: 20110831
  Serious: Yes (Life-Threatening, Other)
  Sender: FDA-Public Use
  Company Number: JP-CELGENEUS-087-21880-11012827

PATIENT
  Sex: Male
  Weight: 70.4 kg

DRUGS (14)
  1. MEROPENEM [Concomitant]
     Indication: PROPHYLAXIS
     Route: 041
     Dates: start: 20100818, end: 20100824
  2. DEXAMETHASONE [Concomitant]
     Indication: MULTIPLE MYELOMA
     Route: 048
     Dates: start: 20100730, end: 20100810
  3. BIO-THREE [Concomitant]
     Indication: PROPHYLAXIS
     Route: 048
     Dates: start: 20091218, end: 20100817
  4. ITRIZOLE [Concomitant]
     Indication: PROPHYLAXIS
     Route: 048
     Dates: start: 20100521, end: 20100817
  5. MAGMITT [Concomitant]
     Indication: CONSTIPATION
     Route: 048
     Dates: start: 20100702, end: 20100816
  6. REVLIMID [Suspect]
     Route: 048
     Dates: start: 20100809, end: 20100815
  7. MUCOSTA [Concomitant]
     Indication: PROPHYLAXIS
     Route: 048
     Dates: start: 20091218, end: 20100817
  8. BACTRIM [Concomitant]
     Indication: PROPHYLAXIS
     Route: 048
     Dates: start: 20100607, end: 20100816
  9. CRAVIT [Concomitant]
     Indication: PROPHYLAXIS
     Route: 048
     Dates: start: 20100716, end: 20100814
  10. REVLIMID [Suspect]
     Indication: MULTIPLE MYELOMA
     Route: 048
     Dates: start: 20100730, end: 20100805
  11. DEXAMETHASONE [Concomitant]
     Route: 048
     Dates: start: 20100811, end: 20100814
  12. PRODIF [Concomitant]
     Indication: PROPHYLAXIS
     Route: 041
     Dates: start: 20100819, end: 20100824
  13. DUROTEP [Concomitant]
     Indication: MULTIPLE MYELOMA
     Route: 062
     Dates: start: 20100806, end: 20100825
  14. DEXAMETHASONE [Concomitant]
     Route: 048
     Dates: start: 20100815, end: 20100817

REACTIONS (9)
  - PULMONARY HAEMORRHAGE [None]
  - THROMBOCYTOPENIA [None]
  - CONVULSION [None]
  - GASTRIC HAEMORRHAGE [None]
  - BRONCHOPNEUMONIA [None]
  - NEUTROPENIA [None]
  - HYPOALBUMINAEMIA [None]
  - ANAEMIA [None]
  - HYPERGLYCAEMIA [None]
